FAERS Safety Report 16734324 (Version 1)
Quarter: 2019Q4

REPORT INFORMATION
  Report Type: Spontaneous
  Country: US (occurrence: US)
  Receive Date: 20190822
  Receipt Date: 20190822
  Transmission Date: 20200122
  Serious: Yes (Other)
  Sender: FDA-Public Use
  Company Number: None

PATIENT
  Age: 39 Year
  Sex: Female
  Weight: 51.3 kg

DRUGS (4)
  1. TUMERIC [Concomitant]
     Active Substance: HERBALS\TURMERIC
  2. MUCUS RELIEF EXTENDED-RELEASE [Suspect]
     Active Substance: GUAIFENESIN
     Indication: EAR DISORDER
     Dosage: ?          QUANTITY:2 TABLET(S);?
     Route: 048
     Dates: start: 20190821, end: 20190821
  3. VITAMIN C (TAKEN THESE EVERYDAY FORYEARS) [Concomitant]
  4. OMEGA 3 FISH OIL [Concomitant]
     Active Substance: FISH OIL\OMEGA-3 FATTY ACIDS

REACTIONS (7)
  - Product substitution issue [None]
  - Delusion [None]
  - Nausea [None]
  - Depersonalisation/derealisation disorder [None]
  - Derealisation [None]
  - Autoscopy [None]
  - Hypophagia [None]

NARRATIVE: CASE EVENT DATE: 20190822
